APPROVED DRUG PRODUCT: ALPRAZOLAM
Active Ingredient: ALPRAZOLAM
Strength: 1MG
Dosage Form/Route: TABLET, EXTENDED RELEASE;ORAL
Application: A078449 | Product #004
Applicant: APOTEX INC
Approved: Dec 23, 2015 | RLD: No | RS: No | Type: DISCN